FAERS Safety Report 8363761-5 (Version None)
Quarter: 2012Q1

REPORT INFORMATION
  Report Type: 
  Country: None (occurrence: None)
  Receive Date: 20120323
  Receipt Date: 20111121
  Transmission Date: 20120608
  Serious: Yes (Other)
  Sender: FDA-Public Use
  Company Number: 163-21880-11113189

PATIENT
  Age: 64 Year
  Sex: Male

DRUGS (1)
  1. REVLIMID [Suspect]
     Indication: MULTIPLE MYELOMA
     Dosage: 25 MG, DAYS 1-21 OF 28 DAY CYCLE, PO
     Route: 048
     Dates: start: 20111022, end: 20111101

REACTIONS (3)
  - ANAEMIA [None]
  - INFLUENZA LIKE ILLNESS [None]
  - THROMBOSIS [None]
